FAERS Safety Report 16425254 (Version 5)
Quarter: 2019Q4

REPORT INFORMATION
  Report Type: Report from Study
  Country: JP (occurrence: JP)
  Receive Date: 20190613
  Receipt Date: 20191227
  Transmission Date: 20200122
  Serious: Yes (Other)
  Sender: FDA-Public Use
  Company Number: JP-ASTELLAS-2019JP011609

PATIENT
  Age: 87 Year
  Sex: Male
  Weight: 53 kg

DRUGS (4)
  1. ASP2215 [Suspect]
     Active Substance: GILTERITINIB
     Route: 048
  2. ASP2215 [Suspect]
     Active Substance: GILTERITINIB
     Indication: ACUTE MYELOID LEUKAEMIA REFRACTORY
     Route: 048
     Dates: start: 20190313, end: 20190502
  3. VIDAZA [Concomitant]
     Active Substance: AZACITIDINE
     Indication: ACUTE MYELOID LEUKAEMIA
     Dosage: 120 MG/DAY, UNKNOWN FREQ.
     Route: 041
     Dates: start: 20190404, end: 20190408
  4. VIDAZA [Concomitant]
     Active Substance: AZACITIDINE
     Dosage: 120 MG/DAY, UNKNOWN FREQ.
     Route: 041
     Dates: start: 20190430, end: 20190504

REACTIONS (2)
  - Acute myeloid leukaemia [Unknown]
  - Infection [Recovered/Resolved]

NARRATIVE: CASE EVENT DATE: 20190502
